FAERS Safety Report 16482724 (Version 1)
Quarter: 2019Q2

REPORT INFORMATION
  Report Type: Spontaneous
  Country: IL (occurrence: IL)
  Receive Date: 20190627
  Receipt Date: 20190627
  Transmission Date: 20190711
  Serious: Yes (Other)
  Sender: FDA-Public Use
  Company Number: IL-TEVA-2019-IL-1068012

PATIENT
  Age: 81 Year
  Sex: Female

DRUGS (3)
  1. ELTROXIN [Concomitant]
     Active Substance: LEVOTHYROXINE
     Route: 065
  2. MOXYPEN ? FORTE 250 MG POWDER FOR SUSPENSION [Suspect]
     Active Substance: AMOXICILLIN
     Route: 065
  3. TRITACE COMP [Concomitant]
     Route: 065

REACTIONS (2)
  - Rash [Unknown]
  - Pruritus [Unknown]
